FAERS Safety Report 11351150 (Version 1)
Quarter: 2015Q3

REPORT INFORMATION
  Report Type: Spontaneous
  Country: US (occurrence: None)
  Receive Date: 20150806
  Receipt Date: 20150806
  Transmission Date: 20151125
  Serious: Yes (Life-Threatening)
  Sender: FDA-Public Use
  Company Number: None

PATIENT
  Age: 35 Year
  Sex: Female
  Weight: 47 kg

DRUGS (1)
  1. HUMIRA [Suspect]
     Active Substance: ADALIMUMAB
     Indication: RHEUMATOID ARTHRITIS
     Dosage: 40 (0.8ML) EVERY 14 DAYS
     Route: 058
     Dates: start: 20130701, end: 20150601

REACTIONS (2)
  - Pulmonary tuberculosis [None]
  - Pneumothorax [None]

NARRATIVE: CASE EVENT DATE: 20150610
